FAERS Safety Report 6444956-4 (Version None)
Quarter: 2009Q4

REPORT INFORMATION
  Report Type: 
  Country: None (occurrence: None)
  Receive Date: 20091118
  Receipt Date: 20091109
  Transmission Date: 20100525
  Serious: Yes (Other)
  Sender: FDA-Public Use
  Company Number: US-CELGENEUS-163-21880-09110836

PATIENT
  Sex: Female

DRUGS (2)
  1. REVLIMID [Suspect]
     Indication: MULTIPLE MYELOMA
     Route: 048
     Dates: start: 20090601
  2. REVLIMID [Suspect]
     Dosage: 10-25 MG
     Route: 048
     Dates: start: 20080801, end: 20090201

REACTIONS (13)
  - BACK PAIN [None]
  - BACTERIAL ALLERGY [None]
  - BLINDNESS UNILATERAL [None]
  - BONE PAIN [None]
  - DEAFNESS [None]
  - DISEASE PROGRESSION [None]
  - DIZZINESS [None]
  - DYSPHAGIA [None]
  - FALL [None]
  - FRACTURE [None]
  - MALAISE [None]
  - MULTIPLE MYELOMA [None]
  - OROPHARYNGEAL PAIN [None]
